FAERS Safety Report 15981221 (Version 1)
Quarter: 2019Q1

REPORT INFORMATION
  Report Type: Spontaneous
  Country: US (occurrence: US)
  Receive Date: 20190218
  Receipt Date: 20190218
  Transmission Date: 20190418
  Serious: Yes (Other)
  Sender: FDA-Public Use
  Company Number: None

PATIENT
  Age: 76 Year
  Sex: Male
  Weight: 67.5 kg

DRUGS (1)
  1. DILAUDID [Suspect]
     Active Substance: HYDROMORPHONE HYDROCHLORIDE
     Indication: PROCEDURAL PAIN
     Dates: start: 20190217, end: 20190217

REACTIONS (4)
  - Paranoia [None]
  - Hallucination [None]
  - Hallucination, visual [None]
  - Disorientation [None]

NARRATIVE: CASE EVENT DATE: 20190217
